FAERS Safety Report 12114191 (Version 1)
Quarter: 2016Q1

REPORT INFORMATION
  Report Type: Spontaneous
  Country: US (occurrence: US)
  Receive Date: 20160225
  Receipt Date: 20160225
  Transmission Date: 20160526
  Serious: No
  Sender: FDA-Public Use
  Company Number: US-LANTHEUS-LMI-2015-00089

PATIENT
  Age: 77 Year
  Sex: Female
  Weight: 93.9 kg

DRUGS (4)
  1. DOBUTAMINE [Suspect]
     Active Substance: DOBUTAMINE\DOBUTAMINE HYDROCHLORIDE
     Indication: STRESS ECHOCARDIOGRAM
     Dosage: DOSE AND ROUTE OF ADMINISTRATION NOT PROVIDED
  2. DEFINITY [Suspect]
     Active Substance: PERFLUTREN
     Indication: STRESS ECHOCARDIOGRAM
     Dosage: 1.5 ML DEFINITY DILUTED IN 8.5 ML NORMAL SALINE
     Route: 040
     Dates: start: 20150223, end: 20150223
  3. DEFINITY [Suspect]
     Active Substance: PERFLUTREN
     Indication: STRESS ECHOCARDIOGRAM
     Dosage: 1.5 ML DEFINITY DILUTED IN 8.5 ML NORMAL SALINE
     Route: 040
     Dates: start: 20150223, end: 20150223
  4. DEFINITY [Suspect]
     Active Substance: PERFLUTREN
     Indication: STRESS ECHOCARDIOGRAM
     Dosage: 1.5 ML DEFINITY DILUTED IN 8.5 ML NORMAL SALINE
     Route: 040
     Dates: start: 20150223, end: 20150223

REACTIONS (4)
  - Headache [Recovered/Resolved]
  - Dizziness [Recovered/Resolved]
  - Musculoskeletal pain [Recovered/Resolved]
  - Throat tightness [Recovered/Resolved]

NARRATIVE: CASE EVENT DATE: 20150223
